FAERS Safety Report 4899883-0 (Version None)
Quarter: 2006Q1

REPORT INFORMATION
  Report Type: 
  Country: None (occurrence: None)
  Receive Date: 20060118
  Receipt Date: 20051013
  Transmission Date: 20060701
  Serious: No
  Sender: FDA-Public Use
  Company Number: 2005002011

PATIENT
  Age: 75 Year
  Sex: Female
  Weight: 50.8029 kg

DRUGS (1)
  1. TARCEVA [Suspect]
     Indication: NON-SMALL CELL LUNG CANCER
     Dosage: 150 MG (QD), ORAL
     Route: 048
     Dates: start: 20050715

REACTIONS (6)
  - ALOPECIA [None]
  - ARTHRALGIA [None]
  - DIARRHOEA [None]
  - DYSGEUSIA [None]
  - HAIR TEXTURE ABNORMAL [None]
  - RASH [None]
